FAERS Safety Report 11651843 (Version 1)
Quarter: 2015Q4

REPORT INFORMATION
  Report Type: Spontaneous
  Country: US (occurrence: None)
  Receive Date: 20151021
  Receipt Date: 20151021
  Transmission Date: 20160304
  Serious: No
  Sender: FDA-Public Use
  Company Number: None

PATIENT
  Age: 71 Year
  Sex: Female
  Weight: 61.24 kg

DRUGS (23)
  1. COMBIVENT [Concomitant]
     Active Substance: ALBUTEROL SULFATE\IPRATROPIUM BROMIDE
  2. ZOFRAN [Concomitant]
     Active Substance: ONDANSETRON HYDROCHLORIDE
  3. MAGNESIUM [Concomitant]
     Active Substance: MAGNESIUM
  4. RED RICE YEAST [Concomitant]
     Active Substance: DIETARY SUPPLEMENT
  5. VITAMIN B12 [Concomitant]
     Active Substance: CYANOCOBALAMIN
  6. AMOXICILLIN. [Concomitant]
     Active Substance: AMOXICILLIN
  7. AMLODIPINE [Concomitant]
     Active Substance: AMLODIPINE BESYLATE
  8. ALBUTEROL. [Concomitant]
     Active Substance: ALBUTEROL
  9. SPIRIVA INHALER [Concomitant]
  10. D3 [Concomitant]
     Active Substance: 25-HYDROXYCHOLECALCIFEROL, 5-TRANS-
  11. COQ10 [Concomitant]
     Active Substance: UBIDECARENONE
  12. GABAPENTIN. [Concomitant]
     Active Substance: GABAPENTIN
  13. NORCO [Concomitant]
     Active Substance: ACETAMINOPHEN\HYDROCODONE BITARTRATE
  14. CREON [Concomitant]
     Active Substance: PANCRELIPASE AMYLASE\PANCRELIPASE LIPASE\PANCRELIPASE PROTEASE
  15. LEVOXYL [Concomitant]
     Active Substance: LEVOTHYROXINE SODIUM
  16. BENADRYL [Concomitant]
     Active Substance: DIPHENHYDRAMINE HYDROCHLORIDE
  17. EQUATE FAST-ACTING MOTION SICKNESS RELIEF [Suspect]
     Active Substance: DIMENHYDRINATE
     Indication: SLEEP DISORDER
     Dosage: 50 MG 1 PILL BEDTIME BY MOUTH W/WATER
     Route: 048
     Dates: start: 20150928, end: 20150930
  18. ENBREL [Concomitant]
     Active Substance: ETANERCEPT
  19. CLONAZEPAM. [Concomitant]
     Active Substance: CLONAZEPAM
  20. LOSARTAN. [Concomitant]
     Active Substance: LOSARTAN
  21. FOLIC ACID. [Concomitant]
     Active Substance: FOLIC ACID
  22. ASTELINE NASAL MIST [Concomitant]
  23. KRILL OIL [Concomitant]
     Active Substance: DIETARY SUPPLEMENT

REACTIONS (3)
  - Throat irritation [None]
  - Glossodynia [None]
  - Haemoptysis [None]

NARRATIVE: CASE EVENT DATE: 20150928
